FAERS Safety Report 22781664 (Version 2)
Quarter: 2025Q2

REPORT INFORMATION
  Report Type: Spontaneous
  Country: US (occurrence: US)
  Receive Date: 20230803
  Receipt Date: 20250411
  Transmission Date: 20250717
  Serious: Yes (Hospitalization, Other)
  Sender: EXELIXIS
  Company Number: US-EXELIXIS-CABO-23066503

PATIENT
  Age: 75 Year
  Sex: Male

DRUGS (1)
  1. CABOMETYX [Suspect]
     Active Substance: CABOZANTINIB S-MALATE
     Indication: Hepatocellular carcinoma

REACTIONS (13)
  - Adverse drug reaction [Unknown]
  - Gastrointestinal haemorrhage [Unknown]
  - Deep vein thrombosis [Unknown]
  - Blood pressure decreased [Unknown]
  - Nausea [Recovering/Resolving]
  - Vomiting [Unknown]
  - Dehydration [Unknown]
  - Diarrhoea [Unknown]
  - Ageusia [Recovering/Resolving]
  - Zinc deficiency [Unknown]
  - Decreased appetite [Unknown]
  - Asthenia [Recovering/Resolving]
  - Malaise [Unknown]

NARRATIVE: CASE EVENT DATE: 20230712
